FAERS Safety Report 4774921-4 (Version None)
Quarter: 2005Q3

REPORT INFORMATION
  Report Type: 
  Country: None (occurrence: None)
  Receive Date: 20050919
  Receipt Date: 20050906
  Transmission Date: 20060218
  Serious: Yes (Other)
  Sender: FDA-Public Use
  Company Number: 2005120012

PATIENT
  Age: 57 Year
  Sex: Female
  Weight: 89 kg

DRUGS (6)
  1. CAMPTOSAR [Suspect]
     Indication: COLORECTAL CANCER
     Dosage: 680 MG (680 MG), INTRAVENOUS
     Route: 042
     Dates: start: 20050802, end: 20050802
  2. SEPTANEST (ARTICAINE HYDROCHLORIDE, EPINEPHRINE BITARTRATE) [Suspect]
     Indication: LOCAL ANAESTHESIA
     Dosage: 1.1 ML (1.1) ML
     Dates: start: 20050801, end: 20050801
  3. ADRENALINE (ADRENALINE) [Suspect]
     Indication: LOCAL ANAESTHESIA
     Dates: start: 20050801, end: 20050801
  4. TROPISETRON (TROPISETRON) [Concomitant]
  5. DEXAMETHASONE [Concomitant]
  6. ATROPINE [Concomitant]

REACTIONS (2)
  - DRUG INTERACTION [None]
  - MUSCLE CONTRACTIONS INVOLUNTARY [None]
